FAERS Safety Report 21949633 (Version 1)
Quarter: 2023Q1

REPORT INFORMATION
  Report Type: Spontaneous
  Country: CN (occurrence: CN)
  Receive Date: 20230203
  Receipt Date: 20230203
  Transmission Date: 20230417
  Serious: Yes (Life-Threatening, Other)
  Sender: FDA-Public Use
  Company Number: CN-BoehringerIngelheim-2023-BI-215673

PATIENT
  Age: 62 Year
  Sex: Male

DRUGS (1)
  1. AFATINIB [Suspect]
     Active Substance: AFATINIB
     Indication: Non-small cell lung cancer metastatic
     Route: 048

REACTIONS (6)
  - Toxic epidermal necrolysis [Unknown]
  - Coma [Unknown]
  - Pulmonary interstitial emphysema syndrome [Unknown]
  - Brain oedema [Unknown]
  - Cerebral ventricle collapse [Unknown]
  - Hypoproteinaemia [Unknown]
